FAERS Safety Report 8559462-0 (Version None)
Quarter: 2012Q3

REPORT INFORMATION
  Report Type: 
  Country: None (occurrence: None)
  Receive Date: 20120802
  Receipt Date: 20120517
  Transmission Date: 20120928
  Serious: No
  Sender: FDA-Public Use
  Company Number: US-009507513-1207USA010447

PATIENT

DRUGS (1)
  1. COPPERTONE DRY OIL TANNING PUMP SPRAY SPF-10 [Suspect]
     Indication: PRODUCT USED FOR UNKNOWN INDICATION
     Dosage: UNK, UNKNOWN
     Route: 061
     Dates: start: 20120501

REACTIONS (1)
  - STICKY SKIN [None]
